FAERS Safety Report 21194389 (Version 1)
Quarter: 2022Q3

REPORT INFORMATION
  Report Type: Report from Study
  Country: US (occurrence: US)
  Receive Date: 20220810
  Receipt Date: 20220810
  Transmission Date: 20221026
  Serious: Yes (Other)
  Sender: FDA-Public Use
  Company Number: US-SUN PHARMACEUTICAL INDUSTRIES LTD-2022R1-348038

PATIENT
  Age: 73 Year

DRUGS (4)
  1. IBUPROFEN [Suspect]
     Active Substance: IBUPROFEN
     Indication: Analgesic therapy
     Dosage: 600 MILLIGRAM, TID
     Route: 065
  2. ASPIRIN [Concomitant]
     Active Substance: ASPIRIN
     Indication: Analgesic therapy
     Dosage: 81 MILLIGRAM, BID
     Route: 065
  3. OXYCODONE [Concomitant]
     Active Substance: OXYCODONE
     Indication: Analgesic therapy
     Dosage: 5 MILLIGRAM EVERY 6 HOURS
     Route: 065
  4. TYLENOL [Concomitant]
     Active Substance: ACETAMINOPHEN
     Indication: Analgesic therapy
     Dosage: 1000 MILLIGRAM, TID
     Route: 065

REACTIONS (1)
  - Acute kidney injury [Recovered/Resolved]
